FAERS Safety Report 23010201 (Version 6)
Quarter: 2024Q4

REPORT INFORMATION
  Report Type: Spontaneous
  Country: US (occurrence: US)
  Receive Date: 20230929
  Receipt Date: 20241108
  Transmission Date: 20250115
  Serious: Yes (Hospitalization)
  Sender: SANOFI AVENTIS
  Company Number: US-SA-SAC20230925000501

PATIENT
  Age: 60 Year
  Sex: Female
  Weight: 125 kg

DRUGS (41)
  1. DUPIXENT [Suspect]
     Active Substance: DUPILUMAB
     Indication: Asthma
     Dosage: 300 MG, QOW
     Route: 058
  2. DUPIXENT [Suspect]
     Active Substance: DUPILUMAB
     Indication: Chronic obstructive pulmonary disease
     Dosage: 600 MG, QOW
     Route: 058
     Dates: start: 2022
  3. DUPIXENT [Suspect]
     Active Substance: DUPILUMAB
     Dosage: 300 MG, QOW
     Route: 058
     Dates: start: 20230526
  4. FARXIGA [Concomitant]
     Active Substance: DAPAGLIFLOZIN PROPANEDIOL
     Dosage: UNK
  5. FARXIGA [Concomitant]
     Active Substance: DAPAGLIFLOZIN PROPANEDIOL
  6. LIDODERM [Concomitant]
     Active Substance: LIDOCAINE
     Dosage: UNK
  7. LIDODERM [Concomitant]
     Active Substance: LIDOCAINE
  8. ZYRTEC [Concomitant]
     Active Substance: CETIRIZINE HYDROCHLORIDE
     Dosage: UNK
  9. ZYRTEC [Concomitant]
     Active Substance: CETIRIZINE HYDROCHLORIDE
  10. TIZANIDINE HYDROCHLORIDE [Concomitant]
     Active Substance: TIZANIDINE HYDROCHLORIDE
     Dosage: UNK
  11. TIZANIDINE HYDROCHLORIDE [Concomitant]
     Active Substance: TIZANIDINE HYDROCHLORIDE
  12. DICYCLOMINE HYDROCHLORIDE [Concomitant]
     Active Substance: DICYCLOMINE HYDROCHLORIDE
     Dosage: UNK
  13. DICYCLOMINE HYDROCHLORIDE [Concomitant]
     Active Substance: DICYCLOMINE HYDROCHLORIDE
  14. HYDROXYZINE HYDROCHLORIDE [Concomitant]
     Active Substance: HYDROXYZINE HYDROCHLORIDE
     Dosage: UNK
  15. HYDROXYZINE HYDROCHLORIDE [Concomitant]
     Active Substance: HYDROXYZINE HYDROCHLORIDE
  16. PANTOPRAZOLE SODIUM [Concomitant]
     Active Substance: PANTOPRAZOLE SODIUM
     Dosage: UNK
  17. SINGULAIR [Concomitant]
     Active Substance: MONTELUKAST SODIUM
     Dosage: UNK
  18. SINGULAIR [Concomitant]
     Active Substance: MONTELUKAST SODIUM
  19. MELOXICAM [Concomitant]
     Active Substance: MELOXICAM
     Dosage: UNK
  20. MELOXICAM [Concomitant]
     Active Substance: MELOXICAM
  21. GABAPENTIN [Concomitant]
     Active Substance: GABAPENTIN
     Dosage: UNK
  22. GABAPENTIN [Concomitant]
     Active Substance: GABAPENTIN
  23. MELATONIN [Concomitant]
     Active Substance: MELATONIN
     Dosage: UNK
  24. MELATONIN [Concomitant]
     Active Substance: MELATONIN
  25. SPIRIVA RESPIMAT [Concomitant]
     Active Substance: TIOTROPIUM BROMIDE
     Dosage: UNK
  26. SPIRIVA RESPIMAT [Concomitant]
     Active Substance: TIOTROPIUM BROMIDE
  27. SYMBICORT [Concomitant]
     Active Substance: BUDESONIDE\FORMOTEROL FUMARATE DIHYDRATE
     Dosage: UNK
  28. SYMBICORT [Concomitant]
     Active Substance: BUDESONIDE\FORMOTEROL FUMARATE DIHYDRATE
  29. ALBUTEROL SULFATE [Concomitant]
     Active Substance: ALBUTEROL SULFATE
     Dosage: UNK
  30. ALBUTEROL SULFATE [Concomitant]
     Active Substance: ALBUTEROL SULFATE
  31. CALCIUM [Concomitant]
     Active Substance: CALCIUM
     Dosage: UNK
  32. CALCIUM [Concomitant]
     Active Substance: CALCIUM
  33. BIOTIN [Concomitant]
     Active Substance: BIOTIN
     Dosage: UNK
  34. BIOTIN [Concomitant]
     Active Substance: BIOTIN
  35. VITAMIN D3 [Concomitant]
     Active Substance: CHOLECALCIFEROL
     Dosage: UNK
  36. VITAMIN D3 [Concomitant]
     Active Substance: CHOLECALCIFEROL
  37. VITAMIN B-1 [THIAMINE HYDROCHLORIDE] [Concomitant]
     Dosage: UNK
  38. FLAXSEED [Concomitant]
     Active Substance: FLAX SEED
     Dosage: UNK
  39. FLAXSEED [Concomitant]
     Active Substance: FLAX SEED
  40. VITAMIN C [Concomitant]
     Active Substance: ASCORBIC ACID
  41. PANTOPRAZOLE SODIUM [Concomitant]
     Active Substance: PANTOPRAZOLE SODIUM

REACTIONS (5)
  - Dyspnoea [Unknown]
  - Asthma [Unknown]
  - Drug ineffective [Unknown]
  - Extra dose administered [Unknown]
  - Product use in unapproved indication [Unknown]

NARRATIVE: CASE EVENT DATE: 20220101
